FAERS Safety Report 17090796 (Version 1)
Quarter: 2019Q4

REPORT INFORMATION
  Report Type: Spontaneous
  Country: BR (occurrence: BR)
  Receive Date: 20191129
  Receipt Date: 20191129
  Transmission Date: 20200122
  Serious: Yes (Other)
  Sender: FDA-Public Use
  Company Number: BR-AMGEN-BRASP2017193066

PATIENT
  Age: 55 Year
  Sex: Female

DRUGS (2)
  1. ENBREL [Suspect]
     Active Substance: ETANERCEPT
     Dosage: 50 MG, WEEKLY
     Route: 065
     Dates: end: 201807
  2. ENBREL [Suspect]
     Active Substance: ETANERCEPT
     Indication: ARTHRITIS
     Dosage: 50 MG, WEEKLY
     Route: 065
     Dates: end: 2015

REACTIONS (12)
  - Decreased immune responsiveness [Unknown]
  - Injection site pain [Unknown]
  - Needle issue [Unknown]
  - Injection site discomfort [Unknown]
  - Bone loss [Unknown]
  - Joint injury [Recovering/Resolving]
  - Furuncle [Unknown]
  - Vaginal cyst [Unknown]
  - Folliculitis [Unknown]
  - Drug ineffective for unapproved indication [Unknown]
  - Fall [Unknown]
  - Off label use [Unknown]

NARRATIVE: CASE EVENT DATE: 2017
